FAERS Safety Report 10600823 (Version 1)
Quarter: 2014Q4

REPORT INFORMATION
  Report Type: Spontaneous
  Country: US (occurrence: None)
  Receive Date: 20141121
  Receipt Date: 20141121
  Transmission Date: 20150529
  Serious: No
  Sender: FDA-Public Use
  Company Number: None

PATIENT

DRUGS (2)
  1. HOMEOPATHICS [Suspect]
     Active Substance: HOMEOPATHICS
  2. BRIGHTSPARK [Suspect]
     Active Substance: ARSENIC TRIIODIDE\HYOSCYAMUS NIGER LEAF\VERATRUM ALBUM ROOT
     Indication: ATTENTION DEFICIT/HYPERACTIVITY DISORDER

REACTIONS (2)
  - Product formulation issue [None]
  - Metal poisoning [None]
